FAERS Safety Report 19602288 (Version 1)
Quarter: 2021Q3

REPORT INFORMATION
  Report Type: Spontaneous
  Country: FR (occurrence: FR)
  Receive Date: 20210723
  Receipt Date: 20210723
  Transmission Date: 20211014
  Serious: Yes (Life-Threatening)
  Sender: FDA-Public Use
  Company Number: FR-TEVA-2021-FR-1934138

PATIENT
  Age: 31 Year
  Sex: Female
  Weight: 72 kg

DRUGS (2)
  1. CHLORHYDRATE DE DILTIAZEM [Suspect]
     Active Substance: DILTIAZEM HYDROCHLORIDE
     Indication: TACHYCARDIA
     Dosage: 120MG
     Route: 048
     Dates: start: 20210409, end: 20210413
  2. SOTALEX 80 MG, COMPRIME SECABLE [Suspect]
     Active Substance: SOTALOL HYDROCHLORIDE
     Indication: TACHYCARDIA
     Dosage: 80MG, SCORED
     Route: 048
     Dates: start: 20210409, end: 20210413

REACTIONS (2)
  - Cardioactive drug level increased [Recovered/Resolved]
  - Bradycardia [Recovered/Resolved]

NARRATIVE: CASE EVENT DATE: 20210416
